FAERS Safety Report 10378111 (Version 1)
Quarter: 2014Q1

REPORT INFORMATION
  Report Type: Spontaneous
  Country: US (occurrence: None)
  Receive Date: 20140306
  Receipt Date: 20140306
  Transmission Date: 20141002
  Serious: Yes (Other)
  Sender: FDA-Public Use
  Company Number: 163-21880-13013059

PATIENT
  Age: 68 Year
  Sex: Male
  Weight: 106.6 kg

DRUGS (9)
  1. REVLIMID [Suspect]
     Indication: PLASMA CELL MYELOMA
     Route: 048
     Dates: start: 201105
  2. AMIODARONE HCL (AMIODARONE HYDROCHLORIDE) (UNKNOWN) [Concomitant]
  3. ASA (ACETYLSALICYLIC ACID) (ENTERIC-COATED TABLET) [Concomitant]
  4. CALCIUM CITRATE (CALCIUM CITRATE) (UNKNOWN) [Concomitant]
  5. POTASSIUM CHLORIDE (POTASSIUM CHLORIDE) (UNKNOWN) [Concomitant]
  6. PRAVASTATIN SODIUM (PRAVASTATIN SODIUM) (UNKNOWN) [Concomitant]
  7. TOPROL XL (METOPROLOL SUCCINATE) (TABLETS) [Concomitant]
  8. WARFARIN SODIUM (WARFARIN SODIUM) (UNKNOWN) [Concomitant]
  9. ZOMETA (ZOLEDRONIC ACID) (UNKNOWN) [Concomitant]

REACTIONS (1)
  - Pneumonia [None]
